FAERS Safety Report 4322234-7 (Version None)
Quarter: 2004Q1

REPORT INFORMATION
  Report Type: 
  Country: None (occurrence: None)
  Receive Date: 20040323
  Receipt Date: 20040309
  Transmission Date: 20041129
  Serious: Yes (Hospitalization)
  Sender: FDA-Public Use
  Company Number: PANC00204000646

PATIENT
  Age: 56 Year
  Sex: Female
  Weight: 55.7924 kg

DRUGS (5)
  1. CREON [Suspect]
     Indication: ENZYME ABNORMALITY
     Dosage: DAILY PO
     Route: 048
     Dates: start: 19980101
  2. PREMARIN [Concomitant]
  3. BENAZEPRIL HCL [Concomitant]
  4. ATENOLOL [Concomitant]
  5. FOSAMAX [Concomitant]

REACTIONS (3)
  - COELIAC DISEASE [None]
  - PERFORATED ULCER [None]
  - PHARMACEUTICAL PRODUCT COMPLAINT [None]
